FAERS Safety Report 18512085 (Version 5)
Quarter: 2020Q4

REPORT INFORMATION
  Report Type: Report from Study
  Country: ES (occurrence: ES)
  Receive Date: 20201117
  Receipt Date: 20201224
  Transmission Date: 20210114
  Serious: Yes (Hospitalization)
  Sender: FDA-Public Use
  Company Number: ES-SA-2020SA296300

PATIENT

DRUGS (20)
  1. LENALIDOMIDE [Suspect]
     Active Substance: LENALIDOMIDE
     Indication: PLASMA CELL MYELOMA
     Dosage: 25 MG, QD
     Route: 048
     Dates: start: 20201015, end: 20201015
  2. ADIRO [Concomitant]
     Active Substance: ASPIRIN
     Indication: PROPHYLAXIS
     Dosage: DOSAGE (TOTAL DAILY DOSE): 100 MG
     Route: 048
     Dates: start: 20190610
  3. ALDACTONE [Concomitant]
     Active Substance: SPIRONOLACTONE
     Dosage: DOSAGE (TOTAL DAILY DOSE): 25 MG
     Route: 048
     Dates: start: 20191014
  4. DEXAMETHASONE. [Suspect]
     Active Substance: DEXAMETHASONE
     Indication: PLASMA CELL MYELOMA
     Dosage: 20 MG, Q4W
     Route: 065
     Dates: start: 20201015, end: 20201015
  5. DEXAMETHASONE. [Suspect]
     Active Substance: DEXAMETHASONE
     Dosage: 20 MG,  IV OR PO ON THE DAYS OF SAR650984 ADMINISTRATION AND PO OTHERWISE ON D1, D4, D8, D11, D15, D
     Route: 065
     Dates: start: 20190610, end: 20190610
  6. STILNOX [Concomitant]
     Active Substance: ZOLPIDEM TARTRATE
     Indication: PROPHYLAXIS
     Dosage: DOSAGE (TOTAL DAILY DOSE): 10 MG
     Route: 048
     Dates: start: 20190610
  7. EMCONCOR [Concomitant]
     Active Substance: BISOPROLOL FUMARATE
     Dosage: DOSAGE (TOTAL DAILY DOSE): 1 DF
     Route: 048
     Dates: start: 20191014
  8. ISATUXIMAB [Suspect]
     Active Substance: ISATUXIMAB
     Indication: PLASMA CELL MYELOMA
     Dosage: 10 MG/KG, QOW
     Route: 042
     Dates: start: 20201015, end: 20201015
  9. ISATUXIMAB [Suspect]
     Active Substance: ISATUXIMAB
     Dosage: 10 MG/KG, QW
     Route: 042
     Dates: start: 20190610, end: 20190610
  10. LOPERAN [Concomitant]
     Dosage: DOSAGE (TOTAL DAILY DOSE): 2 MG
     Route: 048
     Dates: start: 20190701
  11. LENALIDOMIDE [Suspect]
     Active Substance: LENALIDOMIDE
     Dosage: 25 MG, QD
     Route: 048
     Dates: start: 20190610, end: 20190610
  12. OMEPRAZOL [OMEPRAZOLE] [Concomitant]
     Active Substance: OMEPRAZOLE
     Indication: PROPHYLAXIS
     Dosage: DOSAGE (TOTAL DAILY DOSE): 20 MG
     Route: 048
     Dates: start: 20190610
  13. ACICLOVIR [Concomitant]
     Active Substance: ACYCLOVIR
     Indication: PROPHYLAXIS
     Dosage: DOSAGE (TOTAL DAILY DOSE): 800 MG
     Route: 048
     Dates: start: 20190610
  14. VIMOVO [Concomitant]
     Active Substance: ESOMEPRAZOLE MAGNESIUM\NAPROXEN
     Dosage: DOSAGE (TOTAL DAILY DOSE): 1 DF
     Route: 048
     Dates: start: 20200120
  15. BORTEZOMIB. [Suspect]
     Active Substance: BORTEZOMIB
     Dosage: 1.3 MG/M2, OTHER
     Route: 058
     Dates: start: 20190610, end: 20190610
  16. MASTICAL D [Concomitant]
     Dosage: DOSAGE (TOTAL DAILY DOSE): 1250 MG
     Route: 048
     Dates: start: 20190610
  17. RAMIPRIL. [Concomitant]
     Active Substance: RAMIPRIL
     Dosage: DOSAGE (TOTAL DAILY DOSE): 2.5 MG
     Route: 048
     Dates: start: 20190926
  18. PALEXIA [Concomitant]
     Active Substance: TAPENTADOL HYDROCHLORIDE
     Dosage: DOSAGE (TOTAL DAILY DOSE): 1 DF
     Route: 048
     Dates: start: 20200309
  19. BORTEZOMIB. [Suspect]
     Active Substance: BORTEZOMIB
     Indication: PLASMA CELL MYELOMA
     Dosage: 1.3 MG/M2, OTHER
     Route: 058
     Dates: start: 20191025, end: 20191025
  20. ARCOXIA [Concomitant]
     Active Substance: ETORICOXIB
     Dosage: DOSAGE (TOTAL DAILY DOSE): 1 DF
     Route: 048
     Dates: start: 20200131

REACTIONS (1)
  - Cytomegalovirus colitis [Recovered/Resolved]

NARRATIVE: CASE EVENT DATE: 20201016
